FAERS Safety Report 4664466-4 (Version None)
Quarter: 2005Q2

REPORT INFORMATION
  Report Type: 
  Country: None (occurrence: None)
  Receive Date: 20050518
  Receipt Date: 20050512
  Transmission Date: 20051028
  Serious: Yes (Other)
  Sender: FDA-Public Use
  Company Number: PHEH2005US05400

PATIENT
  Age: 67 Year
  Sex: Female

DRUGS (6)
  1. MILK OF MAGNESIA [Concomitant]
     Indication: CONSTIPATION
     Dates: start: 20041101
  2. CRESTOR [Concomitant]
     Indication: HYPERCHOLESTEROLAEMIA
     Dosage: 10MG QD
  3. LODINE [Concomitant]
     Indication: SCIATICA
     Dosage: 500 MG, QD
     Dates: start: 20050101
  4. FLEXERIL [Concomitant]
     Indication: SCIATICA
     Dates: start: 20050101
  5. STOOL SOFTENER [Concomitant]
  6. ZELNORM [Suspect]
     Indication: CONSTIPATION
     Dosage: 6 MG, BID
     Route: 048
     Dates: start: 20050509, end: 20050512

REACTIONS (3)
  - ABDOMINAL PAIN [None]
  - CONSTIPATION [None]
  - RECTAL HAEMORRHAGE [None]
